FAERS Safety Report 25031931 (Version 1)
Quarter: 2025Q1

REPORT INFORMATION
  Report Type: Spontaneous
  Country: US (occurrence: US)
  Receive Date: 20250303
  Receipt Date: 20250303
  Transmission Date: 20250409
  Serious: No
  Sender: DBL GROUP
  Company Number: US-DBL Pharmaceuticals, Inc.-2172111

PATIENT

DRUGS (3)
  1. METHOCARBAMOL [Suspect]
     Active Substance: METHOCARBAMOL
     Indication: Pain
  2. DICLOFENAC SODIUM [Suspect]
     Active Substance: DICLOFENAC SODIUM
  3. PREDNISONE [Suspect]
     Active Substance: PREDNISONE

REACTIONS (4)
  - Gastroenteritis viral [Unknown]
  - Chills [Unknown]
  - Pyrexia [Unknown]
  - Nausea [Unknown]
